FAERS Safety Report 9408111 (Version 2)
Quarter: 2013Q3

REPORT INFORMATION
  Report Type: Spontaneous
  Country: IT (occurrence: IT)
  Receive Date: 20130718
  Receipt Date: 20130730
  Transmission Date: 20140515
  Serious: Yes (Hospitalization)
  Sender: FDA-Public Use
  Company Number: IT-MERCK-1307ITA004470

PATIENT
  Age: 48 Year
  Sex: Male

DRUGS (4)
  1. REBETOL [Suspect]
     Indication: HEPATITIS C
     Dosage: 600 MG, QD
     Route: 048
     Dates: start: 200705, end: 200803
  2. REBETOL [Suspect]
     Dosage: 200 MG, BID
     Route: 048
     Dates: start: 2009
  3. PEGINTERFERON ALFA-2A [Suspect]
     Indication: HEPATITIS C
     Dosage: 180 MICROGRAM, QW
     Dates: start: 200705, end: 200803
  4. PEGINTERFERON ALFA-2A [Suspect]
     Dosage: 4.5 MILLION UNITS THREE TIMES WEEKLY
     Route: 058
     Dates: start: 2009

REACTIONS (3)
  - Lobar pneumonia [Recovered/Resolved]
  - Pyrexia [Recovered/Resolved]
  - Anaemia [Unknown]
